FAERS Safety Report 5713850-6 (Version None)
Quarter: 2008Q2

REPORT INFORMATION
  Report Type: 
  Country: None (occurrence: None)
  Receive Date: 20080421
  Receipt Date: 20080409
  Transmission Date: 20081010
  Serious: Yes (Death, Hospitalization)
  Sender: FDA-Public Use
  Company Number: A0109578A

PATIENT
  Age: 52 Year
  Sex: Male

DRUGS (6)
  1. RELENZA [Suspect]
     Indication: INFLUENZA
     Dosage: 10 MG TWICE PER DAY INHALED
     Route: 055
     Dates: start: 20000110, end: 20000112
  2. CARVEDILOL [Concomitant]
  3. WARFARIN SODIUM [Concomitant]
  4. DIGOXIN [Concomitant]
  5. ENALAPRIL [Concomitant]
  6. SPIRONOLACTONE [Concomitant]

REACTIONS (4)
  - BLOOD CULTURE POSITIVE [None]
  - DIALYSIS [None]
  - RENAL FAILURE ACUTE [None]
  - STAPHYLOCOCCAL INFECTION [None]
